FAERS Safety Report 9999708 (Version 1)
Quarter: 2014Q1

REPORT INFORMATION
  Report Type: Spontaneous
  Country: US (occurrence: None)
  Receive Date: 20140228
  Receipt Date: 20140228
  Transmission Date: 20141002
  Serious: Yes (Other)
  Sender: FDA-Public Use
  Company Number: PHEH2013US007572

PATIENT
  Age: 50 Year
  Sex: Female

DRUGS (9)
  1. NEORAL [Suspect]
     Indication: RENAL TRANSPLANT
     Route: 048
     Dates: start: 201012
  2. RAPAMUNE (SIROLIMUS) [Concomitant]
  3. ASPIRIN (ACETYLSALICYLIC ACID) [Concomitant]
  4. FERRA SULFATE (FERROUS SULFATE) [Concomitant]
  5. BACTRIM (SULFAMETHOXAZOLE, TRIMETHOPRIM) [Concomitant]
  6. AMLODIPINE (AMLODIPINE) [Concomitant]
  7. METOPROLOL (METOPROLOL) [Concomitant]
  8. ESTROGEN (ESTRADIOL) [Concomitant]
  9. VITAMIN C (ASCORBIC ACID) [Concomitant]

REACTIONS (1)
  - Nephropathy toxic [None]
